FAERS Safety Report 17041240 (Version 4)
Quarter: 2020Q1

REPORT INFORMATION
  Report Type: Spontaneous
  Country: US (occurrence: US)
  Receive Date: 20191118
  Receipt Date: 20200113
  Transmission Date: 20200409
  Serious: Yes (Life-Threatening, Hospitalization, Other)
  Sender: FDA-Public Use
  Company Number: US-AUROBINDO-AUR-APL-2019-071824

PATIENT
  Age: 33 Year
  Sex: Female

DRUGS (1)
  1. IBUPROFEN TABLETS [Suspect]
     Active Substance: IBUPROFEN
     Indication: PRODUCT USED FOR UNKNOWN INDICATION
     Dosage: UNK
     Route: 065

REACTIONS (14)
  - Genital rash [Recovering/Resolving]
  - Oropharyngeal pain [Recovering/Resolving]
  - Viral infection [Recovering/Resolving]
  - Tachycardia [Recovering/Resolving]
  - Mucocutaneous rash [Recovering/Resolving]
  - Pyrexia [Recovered/Resolved]
  - Cough [Recovering/Resolving]
  - Chest pain [Recovering/Resolving]
  - SJS-TEN overlap [Recovering/Resolving]
  - Malaise [Recovering/Resolving]
  - Dyspnoea [Recovering/Resolving]
  - Pustule [Recovering/Resolving]
  - Thrombocytopenia [Recovering/Resolving]
  - Skin exfoliation [Recovering/Resolving]
